FAERS Safety Report 13028808 (Version 2)
Quarter: 2016Q4

REPORT INFORMATION
  Report Type: Spontaneous
  Country: CH (occurrence: CH)
  Receive Date: 20161214
  Receipt Date: 20161221
  Transmission Date: 20170207
  Serious: Yes (Other)
  Sender: FDA-Public Use
  Company Number: CH-GILEAD-2016-0248370

PATIENT
  Age: 55 Year
  Sex: Male

DRUGS (5)
  1. SOFOSBUVIR [Suspect]
     Active Substance: SOFOSBUVIR
     Indication: CHRONIC HEPATITIS C
     Dosage: UNK
     Route: 048
  2. DACLATASVIR. [Suspect]
     Active Substance: DACLATASVIR
     Dosage: 60 MG, UNK
     Route: 048
     Dates: start: 20150918, end: 20160316
  3. DACLATASVIR. [Suspect]
     Active Substance: DACLATASVIR
     Indication: CHRONIC HEPATITIS C
     Dosage: UNK
     Route: 048
  4. SOFOSBUVIR [Suspect]
     Active Substance: SOFOSBUVIR
     Dosage: 400 MG, UNK
     Route: 048
     Dates: start: 20150918, end: 20160316
  5. RIBAVIRIN. [Suspect]
     Active Substance: RIBAVIRIN
     Indication: CHRONIC HEPATITIS C
     Dosage: 1000 MG, UNK
     Route: 048
     Dates: start: 20150918, end: 20160316

REACTIONS (6)
  - Drug ineffective [Unknown]
  - Hepatic cancer [Unknown]
  - Viral mutation identified [Unknown]
  - Hepatitis C [Unknown]
  - Treatment failure [Not Recovered/Not Resolved]
  - Hepatic cirrhosis [Unknown]

NARRATIVE: CASE EVENT DATE: 20160629
